FAERS Safety Report 5243254-4 (Version None)
Quarter: 2007Q1

REPORT INFORMATION
  Report Type: 
  Country: None (occurrence: None)
  Receive Date: 20070215
  Receipt Date: 20070131
  Transmission Date: 20070707
  Serious: Yes (Hospitalization)
  Sender: FDA-Public Use
  Company Number: 233569

PATIENT
  Age: 64 Year
  Sex: Female
  Weight: 60 kg

DRUGS (2)
  1. MABTHERA(RITUXIMAB) CONC FOR SOLUTION FOR INFUSION [Suspect]
     Indication: T-CELL LYMPHOMA
     Dosage: 700 MG, INTRAVENOUS
     Route: 042
     Dates: start: 20060412
  2. CYCLOPHOSPHAMIDE [Suspect]
     Indication: T-CELL LYMPHOMA
     Dosage: 1400 MG, INTRAVENOUS
     Route: 042
     Dates: start: 20060412

REACTIONS (3)
  - AGRANULOCYTOSIS [None]
  - FEBRILE BONE MARROW APLASIA [None]
  - LUNG DISORDER [None]
